FAERS Safety Report 8597386-3 (Version None)
Quarter: 2012Q3

REPORT INFORMATION
  Report Type: 
  Country: None (occurrence: None)
  Receive Date: 20120816
  Receipt Date: 20120804
  Transmission Date: 20120928
  Serious: Yes (Other)
  Sender: FDA-Public Use
  Company Number: DE-PAR PHARMACEUTICAL, INC-2012SCPR004559

PATIENT

DRUGS (3)
  1. LYRICA [Suspect]
     Indication: PRODUCT USED FOR UNKNOWN INDICATION
     Dosage: }= 900 MG, / DAY
     Route: 065
  2. METHADONE HYDROCHLORIDE [Suspect]
     Indication: DRUG ABUSE
     Dosage: UNK, UNKNOWN
     Route: 065
  3. DIAZEPAM [Suspect]
     Indication: PRODUCT USED FOR UNKNOWN INDICATION
     Dosage: UNK, UNKNOWN
     Route: 065

REACTIONS (4)
  - AGITATION [None]
  - PANIC ATTACK [None]
  - AGGRESSION [None]
  - DELUSION [None]
